FAERS Safety Report 5877686-8 (Version None)
Quarter: 2008Q3

REPORT INFORMATION
  Report Type: 
  Country: None (occurrence: None)
  Receive Date: 20080911
  Receipt Date: 20080905
  Transmission Date: 20090109
  Serious: Yes (Disabling, Other)
  Sender: FDA-Public Use
  Company Number: IE-WYE-G01687308

PATIENT
  Sex: Female
  Weight: 60 kg

DRUGS (2)
  1. VENLAFAXINE HYDROCHLORIDE [Suspect]
     Indication: DEPRESSION
     Route: 048
     Dates: start: 20070401, end: 20080701
  2. VENLAFAXINE HYDROCHLORIDE [Suspect]
     Dosage: 75MG DAILY
     Route: 048
     Dates: start: 20080701

REACTIONS (2)
  - PNEUMONIA [None]
  - RESPIRATORY TRACT INFECTION [None]
